FAERS Safety Report 9322068 (Version 1)
Quarter: 2013Q2

REPORT INFORMATION
  Report Type: Spontaneous
  Country: US (occurrence: US)
  Receive Date: 20130531
  Receipt Date: 20130531
  Transmission Date: 20140414
  Serious: Yes (Other)
  Sender: FDA-Public Use
  Company Number: US-JNJFOC-20130515262

PATIENT
  Age: 31 Year
  Sex: Male

DRUGS (1)
  1. LISTERINE (UNSPECIFIED) [Suspect]
     Indication: INTENTIONAL DRUG MISUSE
     Dosage: ONCE OR TWICE
     Route: 048

REACTIONS (2)
  - Drug abuse [Unknown]
  - Product taste abnormal [Unknown]
